FAERS Safety Report 12172873 (Version 2)
Quarter: 2016Q2

REPORT INFORMATION
  Report Type: Spontaneous
  Country: US (occurrence: US)
  Receive Date: 20160311
  Receipt Date: 20160518
  Transmission Date: 20160815
  Serious: No
  Sender: FDA-Public Use
  Company Number: US-PFIZER INC-2016151573

PATIENT
  Sex: Female

DRUGS (1)
  1. AMLODIPINE BESILATE [Suspect]
     Active Substance: AMLODIPINE BESYLATE
     Dosage: 5 MG

REACTIONS (5)
  - Erythema [Unknown]
  - White blood cell count decreased [Unknown]
  - Rash [Unknown]
  - Burning sensation [Unknown]
  - Flushing [Unknown]
